FAERS Safety Report 4725781-9 (Version None)
Quarter: 2005Q3

REPORT INFORMATION
  Report Type: 
  Country: None (occurrence: None)
  Receive Date: 20050722
  Receipt Date: 20050722
  Transmission Date: 20060218
  Serious: Yes (Other)
  Sender: FDA-Public Use
  Company Number: None

PATIENT
  Age: 17 Year
  Sex: Male
  Weight: 78.0187 kg

DRUGS (2)
  1. GAMMAGARD [Suspect]
     Indication: MYASTHENIA GRAVIS
     Dosage: 25GMS  MONTHLY INTRAVENOUS
     Route: 042
     Dates: start: 20041108, end: 20050720
  2. GAMMAGARD [Suspect]

REACTIONS (3)
  - BODY TEMPERATURE INCREASED [None]
  - CONVULSION [None]
  - INFUSION RELATED REACTION [None]
